FAERS Safety Report 9849359 (Version 3)
Quarter: 2014Q1

REPORT INFORMATION
  Report Type: Report from Study
  Country: CN (occurrence: CN)
  Receive Date: 20140128
  Receipt Date: 20140218
  Transmission Date: 20141002
  Serious: Yes (Death, Other)
  Sender: FDA-Public Use
  Company Number: CN-EISAI INC-E7389-04666-CLI-CN

PATIENT
  Age: 44 Year
  Sex: Female
  Weight: 70 kg

DRUGS (1)
  1. ERIBULIN [Suspect]
     Indication: BREAST CANCER METASTATIC
     Route: 041
     Dates: start: 20140117, end: 20140117

REACTIONS (2)
  - Liver injury [Fatal]
  - Pulmonary embolism [Fatal]
